FAERS Safety Report 6079327-6 (Version None)
Quarter: 2009Q1

REPORT INFORMATION
  Report Type: 
  Country: None (occurrence: None)
  Receive Date: 20090216
  Receipt Date: 20090205
  Transmission Date: 20090719
  Serious: Yes (Other)
  Sender: FDA-Public Use
  Company Number: JP-ASTRAZENECA-2009AP00681

PATIENT
  Age: 32399 Day
  Sex: Female

DRUGS (9)
  1. MEROPEN [Suspect]
     Indication: CELLULITIS
     Route: 041
     Dates: start: 20081126, end: 20081202
  2. ENALAPRIL MALEATE [Concomitant]
     Indication: HYPERTENSION
  3. LASIX [Concomitant]
     Indication: CARDIAC FAILURE
  4. BASTAMION [Concomitant]
     Indication: DIABETES MELLITUS
  5. CEROCRAL [Concomitant]
     Indication: CEREBRAL INFARCTION
  6. ALSAZULENE [Concomitant]
     Indication: GASTRITIS
  7. OXATOMIDE [Concomitant]
     Indication: ALLERGY PROPHYLAXIS
  8. BLOSTAR [Concomitant]
     Indication: GASTRITIS
  9. SENNOSIDE [Concomitant]
     Indication: CONSTIPATION

REACTIONS (1)
  - DRUG ERUPTION [None]
